FAERS Safety Report 13296704 (Version 5)
Quarter: 2017Q1

REPORT INFORMATION
  Report Type: Spontaneous
  Country: SE (occurrence: SE)
  Receive Date: 20170306
  Receipt Date: 20170323
  Transmission Date: 20170428
  Serious: Yes (Life-Threatening, Disabling, Other)
  Sender: FDA-Public Use
  Company Number: SE-AMGEN-SWESP2017033565

PATIENT
  Age: 66 Year
  Sex: Male

DRUGS (8)
  1. HUMIRA [Suspect]
     Active Substance: ADALIMUMAB
     Indication: RHEUMATOID ARTHRITIS
     Dosage: 1 DOSE EVERY OTHER WEEK
     Route: 058
     Dates: start: 20130121, end: 20140703
  2. RILUZOL ACTAVIS [Concomitant]
     Dosage: 50 MG, UNK
     Route: 065
  3. AMLODIPINE [Concomitant]
     Active Substance: AMLODIPINE BESYLATE
     Dosage: 10 MG, UNK
  4. LOSARTAN ACTAVIS [Concomitant]
     Active Substance: LOSARTAN
     Dosage: 50 MG, UNK
  5. WARAN [Concomitant]
     Active Substance: WARFARIN SODIUM
     Dosage: 2.5 MG, UNK
  6. ENBREL [Suspect]
     Active Substance: ETANERCEPT
     Indication: RHEUMATOID ARTHRITIS
     Dosage: 1 DF, WEEKLY
     Route: 058
     Dates: start: 20110808, end: 20121112
  7. ORENCIA [Suspect]
     Active Substance: ABATACEPT
     Indication: RHEUMATOID ARTHRITIS
     Dosage: 125 MG, WEEKLY
     Route: 058
     Dates: start: 20140703, end: 20170214
  8. BACTRIM [Concomitant]
     Active Substance: SULFAMETHOXAZOLE\TRIMETHOPRIM
     Dosage: 800/160

REACTIONS (4)
  - Inflammatory bowel disease [Unknown]
  - Amyotrophic lateral sclerosis [Not Recovered/Not Resolved]
  - Motor neurone disease [Not Recovered/Not Resolved]
  - Morton^s neuralgia [Not Recovered/Not Resolved]

NARRATIVE: CASE EVENT DATE: 2016
